FAERS Safety Report 8852788 (Version 2)
Quarter: 2014Q1

REPORT INFORMATION
  Report Type: Spontaneous
  Country: US (occurrence: US)
  Receive Date: 20121022
  Receipt Date: 20140130
  Transmission Date: 20141002
  Serious: Yes (Other)
  Sender: FDA-Public Use
  Company Number: US-ASTRAZENECA-2012SE78975

PATIENT
  Age: 59 Year
  Sex: Male
  Weight: 86.2 kg

DRUGS (12)
  1. NEXIUM [Suspect]
     Indication: GASTROOESOPHAGEAL REFLUX DISEASE
     Route: 048
  2. NEXIUM [Suspect]
     Indication: GASTROOESOPHAGEAL REFLUX DISEASE
     Route: 048
     Dates: start: 1990
  3. NEXIUM [Suspect]
     Indication: GASTROOESOPHAGEAL REFLUX DISEASE
     Route: 048
     Dates: end: 201312
  4. NEXIUM [Suspect]
     Indication: GASTROOESOPHAGEAL REFLUX DISEASE
     Route: 048
     Dates: start: 201312, end: 201312
  5. NEXIUM [Suspect]
     Indication: GASTROOESOPHAGEAL REFLUX DISEASE
     Route: 048
     Dates: start: 201312, end: 20140113
  6. CRESTOR [Suspect]
     Indication: BLOOD CHOLESTEROL ABNORMAL
     Route: 048
     Dates: start: 201102
  7. CRESTOR [Suspect]
     Indication: BLOOD CHOLESTEROL ABNORMAL
     Route: 048
  8. ASPIRIN [Suspect]
     Route: 048
     Dates: start: 201102
  9. PANTOPRAZOLE [Suspect]
     Route: 048
  10. ALLOPURINOL [Concomitant]
  11. LEXAPRO [Concomitant]
  12. PLAVIX [Concomitant]

REACTIONS (15)
  - Myocardial infarction [Unknown]
  - Intervertebral disc degeneration [Unknown]
  - Gout [Unknown]
  - Drug intolerance [Unknown]
  - Neck injury [Unknown]
  - Fatigue [Unknown]
  - Pain [Unknown]
  - Stress [Unknown]
  - Adverse event [Unknown]
  - Gastritis [Unknown]
  - Depression [Unknown]
  - Nausea [Unknown]
  - Drug effect incomplete [Unknown]
  - Drug effect decreased [Unknown]
  - Drug dose omission [Unknown]
